FAERS Safety Report 22368612 (Version 1)
Quarter: 2023Q2

REPORT INFORMATION
  Report Type: Spontaneous
  Country: US (occurrence: US)
  Receive Date: 20230525
  Receipt Date: 20230525
  Transmission Date: 20230722
  Serious: No
  Sender: FDA-Public Use
  Company Number: US-BRISTOL-MYERS SQUIBB COMPANY-2023-074034

PATIENT
  Age: 64 Year
  Sex: Female
  Weight: 104.33 kg

DRUGS (1)
  1. LENALIDOMIDE [Suspect]
     Active Substance: LENALIDOMIDE
     Indication: Plasma cell myeloma
     Dosage: FREQ: ONE CAPSULE ON MONDAY, WEDNESDAY AND FRIDAY OF EVERY WEEK
     Route: 048
     Dates: start: 20230303

REACTIONS (1)
  - Rash pruritic [Unknown]
